FAERS Safety Report 12222544 (Version 1)
Quarter: 2016Q1

REPORT INFORMATION
  Report Type: Spontaneous
  Country: US (occurrence: US)
  Receive Date: 20160330
  Receipt Date: 20160330
  Transmission Date: 20160526
  Serious: No
  Sender: FDA-Public Use
  Company Number: US-MYLANLABS-2015M1024767

PATIENT
  Sex: Male

DRUGS (1)
  1. FENTANYL. [Suspect]
     Active Substance: FENTANYL
     Dosage: 75 ?G, QH, CHANGE Q. 48HR
     Route: 062

REACTIONS (4)
  - Drug withdrawal syndrome [Recovered/Resolved]
  - Incorrect drug administration rate [Recovered/Resolved]
  - Drug effect decreased [Recovered/Resolved]
  - Malaise [Recovered/Resolved]
